FAERS Safety Report 5007426-6 (Version None)
Quarter: 2006Q2

REPORT INFORMATION
  Report Type: 
  Country: None (occurrence: None)
  Receive Date: 20060518
  Receipt Date: 20060518
  Transmission Date: 20061013
  Serious: Yes (Hospitalization)
  Sender: FDA-Public Use
  Company Number: None

PATIENT
  Sex: Male

DRUGS (8)
  1. TRAMADOL HCL [Suspect]
     Indication: PAIN
     Dosage: 50 MG Q 6 HR PRN PO
     Route: 048
     Dates: start: 20050604, end: 20060102
  2. BUPROPION HCL [Suspect]
     Indication: DEPRESSION
     Dosage: 150 MG BID PO
     Route: 048
     Dates: start: 20030725, end: 20060102
  3. FUROSEMIDE [Concomitant]
  4. METOPROLOL TARTRATE [Concomitant]
  5. RABEPRAZOLE SODIUM [Concomitant]
  6. SALSALATE [Concomitant]
  7. TEMAZEPAM [Concomitant]
  8. SIMVASTATIN [Concomitant]

REACTIONS (1)
  - CONVULSION [None]
